FAERS Safety Report 4887624-2 (Version None)
Quarter: 2006Q1

REPORT INFORMATION
  Report Type: 
  Country: None (occurrence: None)
  Receive Date: 20060119
  Receipt Date: 20060119
  Transmission Date: 20060701
  Serious: Yes (Hospitalization)
  Sender: FDA-Public Use
  Company Number: None

PATIENT
  Age: 45 Year
  Sex: Male
  Weight: 92.0802 kg

DRUGS (2)
  1. FOSINOPRIL SODIUM [Suspect]
     Indication: HYPERTENSION
     Dosage: 10 MG PO DAILY
     Dates: start: 20050825, end: 20050912
  2. HYDROCHLOROTHIAZIDE [Suspect]
     Indication: HYPERTENSION
     Dosage: 25 MG PO DAILY
     Route: 048

REACTIONS (8)
  - ANAEMIA [None]
  - ANOREXIA [None]
  - CHILLS [None]
  - DEHYDRATION [None]
  - DYSPNOEA EXERTIONAL [None]
  - FATIGUE [None]
  - PYREXIA [None]
  - RENAL FAILURE ACUTE [None]
